FAERS Safety Report 19079788 (Version 1)
Quarter: 2021Q1

REPORT INFORMATION
  Report Type: Spontaneous
  Country: JP (occurrence: JP)
  Receive Date: 20210331
  Receipt Date: 20210331
  Transmission Date: 20210420
  Serious: Yes (Other)
  Sender: FDA-Public Use
  Company Number: JP-VALIDUS PHARMACEUTICALS LLC-JP-2021VAL000851

PATIENT
  Sex: Female

DRUGS (1)
  1. LASIX [Suspect]
     Active Substance: FUROSEMIDE
     Indication: CARDIAC FAILURE
     Dosage: 10 MG, QD
     Route: 048
     Dates: start: 2019

REACTIONS (4)
  - Tremor [Recovered/Resolved]
  - Vascular insufficiency [Recovered/Resolved]
  - Insomnia [Recovered/Resolved]
  - Carditis [Recovered/Resolved]

NARRATIVE: CASE EVENT DATE: 2019
